FAERS Safety Report 6110657-5 (Version None)
Quarter: 2009Q1

REPORT INFORMATION
  Report Type: 
  Country: None (occurrence: None)
  Receive Date: 20090306
  Receipt Date: 20090220
  Transmission Date: 20090719
  Serious: Yes (Hospitalization)
  Sender: FDA-Public Use
  Company Number: 237950J08USA

PATIENT
  Age: 58 Year
  Sex: Male

DRUGS (4)
  1. REBIF [Suspect]
     Indication: MULTIPLE SCLEROSIS
     Dosage: 44 MCG, 3 IN 1 WEEKS, SUBCUTANEOUS
     Route: 058
     Dates: start: 20080220, end: 20080201
  2. DILANTIN [Concomitant]
  3. CRESTOR [Concomitant]
  4. ZOCOR [Concomitant]

REACTIONS (4)
  - BLOOD CHOLESTEROL INCREASED [None]
  - BRAIN OEDEMA [None]
  - GRAND MAL CONVULSION [None]
  - MYALGIA [None]
